FAERS Safety Report 6254290-3 (Version None)
Quarter: 2009Q3

REPORT INFORMATION
  Report Type: 
  Country: None (occurrence: None)
  Receive Date: 20090701
  Receipt Date: 20090701
  Transmission Date: 20100115
  Serious: Yes (Death, Hospitalization)
  Sender: FDA-Public Use
  Company Number: None

PATIENT
  Sex: Male
  Weight: 88.4514 kg

DRUGS (1)
  1. CIPROFLOXACIN [Suspect]
     Indication: PROPHYLAXIS
     Dosage: 1 TABLET TWICE DAILY PO
     Route: 048
     Dates: start: 20080624, end: 20080705

REACTIONS (7)
  - CARDIO-RESPIRATORY ARREST [None]
  - CELLULITIS [None]
  - DIALYSIS [None]
  - INFECTION [None]
  - LEG AMPUTATION [None]
  - RENAL FAILURE [None]
  - TOE AMPUTATION [None]
